FAERS Safety Report 21595837 (Version 1)
Quarter: 2022Q4

REPORT INFORMATION
  Report Type: Spontaneous
  Country: US (occurrence: US)
  Receive Date: 20221115
  Receipt Date: 20221115
  Transmission Date: 20230113
  Serious: No
  Sender: FDA-Public Use
  Company Number: US-GSKCCFUS-Case-01556371_AE-88002

PATIENT
  Sex: Female

DRUGS (1)
  1. NUCALA [Suspect]
     Active Substance: MEPOLIZUMAB
     Indication: Asthma
     Dosage: 100 MG, SITE OF INJECTION:RIGHT THIGH
     Route: 058

REACTIONS (3)
  - Headache [Unknown]
  - Fatigue [Recovering/Resolving]
  - Decreased activity [Unknown]
